FAERS Safety Report 21750109 (Version 1)
Quarter: 2022Q4

REPORT INFORMATION
  Report Type: Spontaneous
  Country: JP (occurrence: JP)
  Receive Date: 20221219
  Receipt Date: 20221219
  Transmission Date: 20230113
  Serious: Yes (Death)
  Sender: FDA-Public Use
  Company Number: JP-JNJFOC-20221237920

PATIENT
  Age: 71 Year
  Sex: Female

DRUGS (3)
  1. UPTRAVI [Suspect]
     Active Substance: SELEXIPAG
     Indication: Pulmonary veno-occlusive disease
     Route: 048
     Dates: start: 20220704, end: 202207
  2. UPTRAVI [Suspect]
     Active Substance: SELEXIPAG
     Route: 048
     Dates: start: 20220710, end: 2022
  3. OPSUMIT [Concomitant]
     Active Substance: MACITENTAN
     Indication: Pulmonary veno-occlusive disease
     Dates: start: 20220625, end: 2022

REACTIONS (1)
  - Pulmonary veno-occlusive disease [Fatal]

NARRATIVE: CASE EVENT DATE: 20220101
